FAERS Safety Report 18160612 (Version 2)
Quarter: 2020Q3

REPORT INFORMATION
  Report Type: Spontaneous
  Country: US (occurrence: US)
  Receive Date: 20200818
  Receipt Date: 20200923
  Transmission Date: 20201103
  Serious: No
  Sender: FDA-Public Use
  Company Number: US-KARYOPHARM-2020KPT000851

PATIENT

DRUGS (1)
  1. XPOVIO [Suspect]
     Active Substance: SELINEXOR
     Indication: PLASMA CELL MYELOMA
     Dosage: 80 MG, 2X/WEEK
     Route: 048
     Dates: start: 20200721, end: 20200803

REACTIONS (5)
  - Vision blurred [Unknown]
  - Joint swelling [Unknown]
  - Constipation [Unknown]
  - Disturbance in attention [Unknown]
  - Syncope [Unknown]

NARRATIVE: CASE EVENT DATE: 202007
